FAERS Safety Report 5286268-0 (Version None)
Quarter: 2007Q1

REPORT INFORMATION
  Report Type: 
  Country: None (occurrence: None)
  Receive Date: 20070116
  Receipt Date: 20061207
  Transmission Date: 20070707
  Serious: No
  Sender: FDA-Public Use
  Company Number: 2006SP004326

PATIENT
  Age: 81 Year
  Sex: Male
  Weight: 66.6788 kg

DRUGS (3)
  1. LUNESTA [Suspect]
     Indication: INSOMNIA
     Dosage: 3 MG;HS;ORAL
     Route: 048
     Dates: start: 20061205
  2. SIMVASTATIN [Concomitant]
  3. SINGULAIR [Concomitant]

REACTIONS (1)
  - DYSGEUSIA [None]
